FAERS Safety Report 21927420 (Version 1)
Quarter: 2023Q1

REPORT INFORMATION
  Report Type: Spontaneous
  Country: GB (occurrence: None)
  Receive Date: 20230130
  Receipt Date: 20230130
  Transmission Date: 20230417
  Serious: Yes (Other)
  Sender: FDA-Public Use
  Company Number: 2023A017857

PATIENT
  Age: 84 Year
  Sex: Male
  Weight: 70 kg

DRUGS (20)
  1. DAPAGLIFLOZIN [Suspect]
     Active Substance: DAPAGLIFLOZIN
     Indication: Cardiac failure
     Dosage: 5 EVERY DAY
     Route: 065
     Dates: start: 20221205
  2. AMOXICILLIN [Concomitant]
     Active Substance: AMOXICILLIN
     Dosage: 1 THREE TIMES A DAY
     Dates: start: 20210408
  3. BISOPROLOL [Concomitant]
     Active Substance: BISOPROLOL
     Dosage: 1 EVERY DAY
     Dates: start: 20210408
  4. BUMETANIDE [Concomitant]
     Active Substance: BUMETANIDE
     Dosage: IN THE MORNING 2 EVERY DAY
     Dates: start: 20210907
  5. CALCIPOTRIENE [Concomitant]
     Active Substance: CALCIPOTRIENE
     Dosage: USE TWICE DAILY
     Dates: start: 20210408
  6. CLOPIDOGREL [Concomitant]
     Active Substance: CLOPIDOGREL BISULFATE
     Dosage: 1 EVERY DAY
     Dates: start: 20210408
  7. AMOXICILLIN\CLAVULANATE POTASSIUM [Concomitant]
     Active Substance: AMOXICILLIN\CLAVULANATE POTASSIUM
     Dosage: 1 THREE TIMES A DAY
     Dates: start: 20210408
  8. DOCUSATE SODIUM [Concomitant]
     Active Substance: DOCUSATE SODIUM
     Dosage: ONE OR TWO TO BE TAKEN UPTO TWICE A DAY
     Dates: start: 20210408
  9. EZETIMIBE [Concomitant]
     Active Substance: EZETIMIBE
     Dosage: 1 EVERY DAY
     Dates: start: 20210408
  10. NITROGLYCERIN [Concomitant]
     Active Substance: NITROGLYCERIN
     Dosage: 1
     Dates: start: 20210408
  11. INCRUSE ELLIPTA [Concomitant]
     Active Substance: UMECLIDINIUM BROMIDE
     Dosage: 1 EVERY DAY
     Route: 055
     Dates: start: 20220309
  12. IVABRADINE [Concomitant]
     Active Substance: IVABRADINE
     Dosage: IN THE MORNING 1 EVERY DAY
     Dates: start: 20210408
  13. LYMECYCLINE [Concomitant]
     Active Substance: LYMECYCLINE
     Dosage: 1 EVERY DAY
     Dates: start: 20210408
  14. POLYETHYLENE GLYCOLS [Concomitant]
     Active Substance: POLYETHYLENE GLYCOLS
     Dosage: 1/2 TO ONE SACHET DAILY
     Dates: start: 20210706
  15. POVIDONE [Concomitant]
     Active Substance: POVIDONE
     Dates: start: 20210408
  16. SACUBITRIL [Concomitant]
     Active Substance: SACUBITRIL
     Dosage: 1 TWO TIMES A DAY
     Dates: start: 20210907
  17. SPIRONOLACTONE [Concomitant]
     Active Substance: SPIRONOLACTONE
     Dosage: 1 EVERY DAY
     Dates: start: 20221206
  18. ISOSORBIDE MONONITRATE [Concomitant]
     Active Substance: ISOSORBIDE MONONITRATE
     Dosage: EACH MORNING 2 EVERY DAY
     Dates: start: 20210408
  19. VENTOLIN [Concomitant]
     Active Substance: ALBUTEROL SULFATE
     Dosage: AS DIRECTED
     Dates: start: 20220624
  20. ZOPICLONE [Concomitant]
     Active Substance: ZOPICLONE
     Dosage: AT NIGHT
     Dates: start: 20220624

REACTIONS (4)
  - Cold sweat [Recovered/Resolved]
  - Dizziness [Recovered/Resolved]
  - Tremor [Recovered/Resolved]
  - Malaise [Recovered/Resolved]
